FAERS Safety Report 4639066-2 (Version None)
Quarter: 2005Q2

REPORT INFORMATION
  Report Type: 
  Country: None (occurrence: None)
  Receive Date: 20050419
  Receipt Date: 20050408
  Transmission Date: 20051028
  Serious: Yes (Other)
  Sender: FDA-Public Use
  Company Number: US-JNJFOC-20050303547

PATIENT
  Sex: Female

DRUGS (9)
  1. TYLENOL [Suspect]
     Route: 049
  2. TYLENOL [Suspect]
     Route: 049
  3. ALUMINUM HYDROXIDE AND MAGNESIUM TRISILICATE [Concomitant]
  4. ALUMINUM HYDROXIDE AND MAGNESIUM TRISILICATE [Concomitant]
  5. CELEBREX [Concomitant]
  6. APRAZOLAM [Concomitant]
  7. CLARITIN-D [Concomitant]
  8. PULMICORT [Concomitant]
  9. PROVENTIL [Concomitant]

REACTIONS (5)
  - DRY MOUTH [None]
  - DYSPEPSIA [None]
  - LOSS OF CONSCIOUSNESS [None]
  - MALAISE [None]
  - SOMNOLENCE [None]
